FAERS Safety Report 4724573-4 (Version None)
Quarter: 2005Q3

REPORT INFORMATION
  Report Type: 
  Country: None (occurrence: None)
  Receive Date: 20050721
  Receipt Date: 20050628
  Transmission Date: 20060218
  Serious: Yes (Hospitalization)
  Sender: FDA-Public Use
  Company Number: S05-CAN-02460-01

PATIENT
  Age: 52 Year
  Sex: Male

DRUGS (1)
  1. TIAZAC [Suspect]
     Indication: BLOOD PRESSURE
     Dosage: 240 MG QD PO
     Route: 048
     Dates: start: 20030101, end: 20050101

REACTIONS (6)
  - ALLERGY TO ARTHROPOD STING [None]
  - ANAPHYLACTIC SHOCK [None]
  - HYPOTENSION [None]
  - NAUSEA [None]
  - ROAD TRAFFIC ACCIDENT [None]
  - SWELLING [None]
